FAERS Safety Report 25739064 (Version 1)
Quarter: 2025Q3

REPORT INFORMATION
  Report Type: Spontaneous
  Country: US (occurrence: US)
  Receive Date: 20250829
  Receipt Date: 20250829
  Transmission Date: 20251020
  Serious: No
  Sender: MDD OPERATIONS
  Company Number: US-002147023-MDD202507-002659

PATIENT
  Age: 68 Year
  Sex: Male

DRUGS (6)
  1. ONAPGO [Suspect]
     Active Substance: APOMORPHINE HYDROCHLORIDE
     Indication: Parkinson^s disease
     Dosage: NOT PROVIDED
     Dates: start: 20250715
  2. ONAPGO [Suspect]
     Active Substance: APOMORPHINE HYDROCHLORIDE
     Dates: start: 20250728
  3. ONAPGO [Suspect]
     Active Substance: APOMORPHINE HYDROCHLORIDE
     Dates: start: 20250729
  4. CARBIDOPA\LEVODOPA [Concomitant]
     Active Substance: CARBIDOPA\LEVODOPA
     Dosage: EACH DF CONTAINS 25-100MG EVERY 3 HOURS
  5. RASAGILINE [Concomitant]
     Active Substance: RASAGILINE
     Dosage: ONCE A DAY
  6. AMANTADINE [Concomitant]
     Active Substance: AMANTADINE
     Dosage: THREE TIMES A DAY

REACTIONS (3)
  - Abdominal discomfort [Recovered/Resolved]
  - Infusion site erythema [Unknown]
  - Infusion site rash [Unknown]

NARRATIVE: CASE EVENT DATE: 20250716
